FAERS Safety Report 5762016-2 (Version None)
Quarter: 2008Q2

REPORT INFORMATION
  Report Type: 
  Country: None (occurrence: None)
  Receive Date: 20080603
  Receipt Date: 20080523
  Transmission Date: 20081010
  Serious: Yes (Hospitalization)
  Sender: FDA-Public Use
  Company Number: CIP08000902

PATIENT
  Age: 71 Year
  Sex: Male

DRUGS (3)
  1. ACTONEL WITH CALCIUM (COPACKAGED) [Suspect]
     Dosage: 1 TABLET, CYCLIC 1/D, ORAL : 1 ACTONEL TABLET WEEKLY, ORAL
     Route: 048
     Dates: start: 20080101, end: 20080101
  2. ACTONEL WITH CALCIUM (COPACKAGED) [Suspect]
     Dosage: 1 TABLET, CYCLIC 1/D, ORAL : 1 ACTONEL TABLET WEEKLY, ORAL
     Route: 048
     Dates: start: 20080101
  3. LIPITOR [Concomitant]

REACTIONS (2)
  - APPENDICEAL ABSCESS [None]
  - NEPHROLITHIASIS [None]
